FAERS Safety Report 4886474-0 (Version None)
Quarter: 2006Q1

REPORT INFORMATION
  Report Type: 
  Country: None (occurrence: None)
  Receive Date: 20060120
  Receipt Date: 20051104
  Transmission Date: 20060701
  Serious: Yes (Death, Other)
  Sender: FDA-Public Use
  Company Number: JP-BRISTOL-MYERS SQUIBB COMPANY-13167721

PATIENT
  Age: 62 Year
  Sex: Male

DRUGS (4)
  1. ENDOXAN [Suspect]
     Route: 042
     Dates: start: 19880818, end: 19890419
  2. PEPLOMYCIN [Suspect]
     Indication: MALIGNANT FIBROUS HISTIOCYTOMA
     Route: 042
     Dates: start: 19880818, end: 19890419
  3. ADRIAMYCIN PFS [Suspect]
     Indication: SARCOMA
  4. COSMEGEN [Concomitant]
     Route: 042
     Dates: start: 19880818, end: 19890419

REACTIONS (2)
  - CARDIOMYOPATHY [None]
  - PULMONARY FIBROSIS [None]
